FAERS Safety Report 14169949 (Version 2)
Quarter: 2017Q4

REPORT INFORMATION
  Report Type: Spontaneous
  Country: ES (occurrence: ES)
  Receive Date: 20171108
  Receipt Date: 20171113
  Transmission Date: 20180321
  Serious: Yes (Other)
  Sender: FDA-Public Use
  Company Number: ES-ABBVIE-17S-144-2155947-00

PATIENT
  Sex: Female

DRUGS (2)
  1. KREON [Suspect]
     Active Substance: PANCRELIPASE
     Indication: PANCREATIC CARCINOMA
     Dosage: 25.000 U C?PSULAS DURAS GASTRORRESISTENTES
     Route: 048
  2. KREON [Suspect]
     Active Substance: PANCRELIPASE
     Dosage: 5.000 U
     Route: 048

REACTIONS (5)
  - Drug intolerance [Unknown]
  - Pancreatic carcinoma [Unknown]
  - Condition aggravated [Unknown]
  - Abdominal discomfort [Unknown]
  - Abdominal pain [Unknown]
